FAERS Safety Report 16258247 (Version 8)
Quarter: 2019Q3

REPORT INFORMATION
  Report Type: Report from Study
  Country: US (occurrence: US)
  Receive Date: 20190430
  Receipt Date: 20190715
  Transmission Date: 20191004
  Serious: No
  Sender: FDA-Public Use
  Company Number: US-009507513-1904USA013309

PATIENT
  Sex: Female

DRUGS (2)
  1. IMPLANON [Suspect]
     Active Substance: ETONOGESTREL
     Dosage: INSERTED IN LEFT UPPER ARM
     Route: 059
     Dates: start: 2010
  2. IMPLANON [Suspect]
     Active Substance: ETONOGESTREL
     Dosage: INSERTED IN LEFT UPPER ARM
     Route: 059
     Dates: start: 2010

REACTIONS (4)
  - Complication associated with device [Not Recovered/Not Resolved]
  - Incorrect product administration duration [Unknown]
  - Drug level below therapeutic [Unknown]
  - Weight increased [Unknown]

NARRATIVE: CASE EVENT DATE: 2013
